FAERS Safety Report 25549833 (Version 1)
Quarter: 2025Q3

REPORT INFORMATION
  Report Type: Spontaneous
  Country: US (occurrence: US)
  Receive Date: 20250714
  Receipt Date: 20250714
  Transmission Date: 20251021
  Serious: No
  Sender: NOVO NORDISK
  Company Number: US-NOVOPROD-1433026

PATIENT
  Age: 47 Year
  Sex: Female

DRUGS (2)
  1. SEMAGLUTIDE [Suspect]
     Active Substance: SEMAGLUTIDE
     Indication: Weight control
  2. SEMAGLUTIDE [Suspect]
     Active Substance: SEMAGLUTIDE
     Indication: Binge eating

REACTIONS (4)
  - Heart rate variability decreased [Unknown]
  - Blood glucose decreased [Unknown]
  - Heart rate increased [Unknown]
  - Product use issue [Unknown]
